FAERS Safety Report 19109066 (Version 2)
Quarter: 2021Q2

REPORT INFORMATION
  Report Type: Spontaneous
  Country: NL (occurrence: NL)
  Receive Date: 20210408
  Receipt Date: 20210424
  Transmission Date: 20210717
  Serious: Yes (Hospitalization)
  Sender: FDA-Public Use
  Company Number: NL-TEVA-2021-NL-1898490

PATIENT
  Age: 64 Year
  Sex: Female
  Weight: 70 kg

DRUGS (6)
  1. CLOPIDOGREL TABLET 75MG / BRAND NAME NOT SPECIFIED [Concomitant]
     Active Substance: CLOPIDOGREL BISULFATE
     Dosage: THERAPY START DATE ASKU, THERAPY END DATE ASKU
  2. COLECALCIFEROL TABLET 800IE / BRAND NAME NOT SPECIFIED [Concomitant]
     Dosage: THERAPY START DATE ASKU, THERAPY END DATE ASKU
  3. ACETYLSALICYLZUUR DISPERTABLET 80MG / BRAND NAME NOT SPECIFIED [Concomitant]
     Dosage: THERAPY START DATE ASKU, THERAPY END DATE ASKU
  4. TEMAZEPAM CAPSULE 20MG / BRAND NAME NOT SPECIFIED [Concomitant]
     Dosage: THERAPY START DATE ASKU, THERAPY END DATE ASKU
  5. PANTOPRAZOL TABLET MSR 40MG / BRAND NAME NOT SPECIFIED [Concomitant]
     Active Substance: PANTOPRAZOLE
     Dosage: THERAPY START DATE ASKU, THERAPY END DATE ASKU
  6. EZETIMIB TABLET 10MG / BRAND NAME NOT SPECIFIED [Suspect]
     Active Substance: EZETIMIBE
     Indication: DYSLIPIDAEMIA
     Dosage: 1 DD
     Route: 065
     Dates: start: 20210202, end: 20210308

REACTIONS (3)
  - Glossodynia [Recovering/Resolving]
  - Spontaneous haematoma [Unknown]
  - Microscopic polyangiitis [Recovering/Resolving]

NARRATIVE: CASE EVENT DATE: 20210307
